FAERS Safety Report 19685923 (Version 4)
Quarter: 2022Q2

REPORT INFORMATION
  Report Type: Spontaneous
  Country: PL (occurrence: PL)
  Receive Date: 20210811
  Receipt Date: 20220505
  Transmission Date: 20220721
  Serious: Yes (Hospitalization, Other)
  Sender: FDA-Public Use
  Company Number: PL-EMA-DD-20210722-BANAVALLI_M-161652

PATIENT
  Age: 46 Year
  Sex: Male

DRUGS (37)
  1. IVABRADINE [Suspect]
     Active Substance: IVABRADINE
     Indication: Cardiac failure chronic
     Dosage: 5 DF, BID, TABLET
     Route: 065
  2. RAMIPRIL [Suspect]
     Active Substance: RAMIPRIL
     Indication: Cardiac failure chronic
     Dosage: 1 DF, QD
     Route: 048
  3. ROSUVASTATIN [Suspect]
     Active Substance: ROSUVASTATIN
     Indication: Cardiac failure chronic
     Dosage: 1 DF, QD
     Route: 065
  4. ATORVASTATIN [Suspect]
     Active Substance: ATORVASTATIN
     Indication: Cardiac failure chronic
     Dosage: 1 DF, QD,TABLET
     Route: 065
  5. TORSEMIDE [Suspect]
     Active Substance: TORSEMIDE
     Indication: Cardiac failure chronic
     Dosage: 20 MG, QD
     Route: 065
  6. TORSEMIDE [Suspect]
     Active Substance: TORSEMIDE
     Dosage: 20 MG, QD
     Route: 065
  7. TORSEMIDE [Suspect]
     Active Substance: TORSEMIDE
     Dosage: 20 MG, QD
     Route: 065
  8. TORSEMIDE [Suspect]
     Active Substance: TORSEMIDE
     Dosage: 20 MG, QD
     Route: 065
  9. TORSEMIDE [Suspect]
     Active Substance: TORSEMIDE
     Dosage: 20 MG, QD
     Route: 065
  10. TORSEMIDE [Suspect]
     Active Substance: TORSEMIDE
     Dosage: 20 MG, QD
     Route: 065
  11. TORSEMIDE [Suspect]
     Active Substance: TORSEMIDE
     Dosage: 20 MG, QD
     Route: 065
  12. ENTRESTO [Suspect]
     Active Substance: SACUBITRIL\VALSARTAN
     Indication: Cardiac failure chronic
     Dosage: 2 DF (OF 49/51MG)
     Route: 065
  13. ENTRESTO [Suspect]
     Active Substance: SACUBITRIL\VALSARTAN
     Dosage: 2 DF (OF 24/26MG)
     Route: 065
     Dates: start: 20191128
  14. ENTRESTO [Suspect]
     Active Substance: SACUBITRIL\VALSARTAN
     Dosage: 2 DF (OF 49/51MG)
     Route: 065
  15. ENTRESTO [Suspect]
     Active Substance: SACUBITRIL\VALSARTAN
     Dosage: 2 DF (OF 49/51MG)
     Route: 065
  16. ENTRESTO [Suspect]
     Active Substance: SACUBITRIL\VALSARTAN
     Dosage: 2 DF (OF 49/51MG)
     Route: 065
  17. EPLERENONE [Suspect]
     Active Substance: EPLERENONE
     Indication: Cardiac failure chronic
     Dosage: 1 DF, QD
     Route: 065
  18. EPLERENONE [Suspect]
     Active Substance: EPLERENONE
     Dosage: 1 DF, QD
     Route: 065
  19. EPLERENONE [Suspect]
     Active Substance: EPLERENONE
     Dosage: 1 DF, QD
     Route: 065
  20. EPLERENONE [Suspect]
     Active Substance: EPLERENONE
     Dosage: 1 DF, QD
     Route: 065
  21. EPLERENONE [Suspect]
     Active Substance: EPLERENONE
     Dosage: 1 DF, QD
     Route: 065
  22. EPLERENONE [Suspect]
     Active Substance: EPLERENONE
     Dosage: 1 DF, QD
     Route: 065
  23. EPLERENONE [Suspect]
     Active Substance: EPLERENONE
     Dosage: 1 DF, QD
     Route: 065
  24. ASPIRIN [Suspect]
     Active Substance: ASPIRIN
     Indication: Cardiac failure chronic
     Dosage: 1 DF, QD
     Route: 065
  25. ASPIRIN [Suspect]
     Active Substance: ASPIRIN
     Dosage: 1 DF, QD
     Route: 065
  26. ASPIRIN [Suspect]
     Active Substance: ASPIRIN
     Dosage: 1 DF, QD
     Route: 065
  27. ASPIRIN [Suspect]
     Active Substance: ASPIRIN
     Dosage: 1 DF, QD
     Route: 065
  28. ASPIRIN [Suspect]
     Active Substance: ASPIRIN
     Dosage: 1 DF, QD
     Route: 065
  29. ASPIRIN [Suspect]
     Active Substance: ASPIRIN
     Dosage: 1 DF, QD
     Route: 065
  30. ASPIRIN [Suspect]
     Active Substance: ASPIRIN
     Dosage: 1 DF, QD
     Route: 065
  31. CARVEDILOL [Suspect]
     Active Substance: CARVEDILOL
     Indication: Cardiac failure chronic
     Dosage: 1 DF, BID
     Route: 065
  32. CARVEDILOL [Suspect]
     Active Substance: CARVEDILOL
     Dosage: 1 DF, BID
     Route: 065
  33. CARVEDILOL [Suspect]
     Active Substance: CARVEDILOL
     Dosage: 1 DF, BID
     Route: 065
  34. CARVEDILOL [Suspect]
     Active Substance: CARVEDILOL
     Dosage: 1 DF, BID
     Route: 065
  35. CARVEDILOL [Suspect]
     Active Substance: CARVEDILOL
     Route: 065
  36. CARVEDILOL [Suspect]
     Active Substance: CARVEDILOL
     Route: 065
  37. CARVEDILOL [Suspect]
     Active Substance: CARVEDILOL
     Route: 065

REACTIONS (11)
  - Hypotension [Unknown]
  - Feeling abnormal [Unknown]
  - Cardiac failure [Recovered/Resolved]
  - Electrocardiogram abnormal [Unknown]
  - Computerised tomogram coronary artery abnormal [Unknown]
  - Cardiac failure [Recovered/Resolved]
  - Bradycardia [Unknown]
  - Cardiac failure [Recovered/Resolved]
  - Electrocardiogram abnormal [Unknown]
  - Overdose [Unknown]
  - Overdose [Recovered/Resolved]

NARRATIVE: CASE EVENT DATE: 20190522
